FAERS Safety Report 9467411 (Version 1)
Quarter: 2013Q3

REPORT INFORMATION
  Report Type: Spontaneous
  Country: US (occurrence: None)
  Receive Date: 20130819
  Receipt Date: 20130819
  Transmission Date: 20140515
  Serious: Yes (Other)
  Sender: FDA-Public Use
  Company Number: None

PATIENT
  Age: 94 Year
  Sex: Male
  Weight: 54 kg

DRUGS (1)
  1. HEPARIN SODIUM [Suspect]
     Indication: EMBOLISM
     Dates: start: 20130815, end: 20130815

REACTIONS (4)
  - Thrombosis [None]
  - Pain in extremity [None]
  - Local swelling [None]
  - Swelling [None]
